FAERS Safety Report 7835150-0 (Version None)
Quarter: 2011Q4

REPORT INFORMATION
  Report Type: 
  Country: None (occurrence: None)
  Receive Date: 20111024
  Receipt Date: 20110921
  Transmission Date: 20120403
  Serious: Yes (Other)
  Sender: FDA-Public Use
  Company Number: PHHY2011BR86882

PATIENT
  Age: 69 Year
  Sex: Male

DRUGS (6)
  1. LOSARTAN POTASSIUM [Concomitant]
     Dosage: 100 MG, QD
  2. CAPTOPRIL [Suspect]
     Indication: BLOOD PRESSURE
     Dosage: 50 MG, QD
     Route: 048
  3. PREDNISOLONE [Concomitant]
     Dosage: 2.5 MG, UNK
  4. HYDROCHLOROTHIAZIDE [Concomitant]
     Dosage: 12.5 MG, QD
  5. AMLODIPINE BESYLATE [Suspect]
     Indication: BLOOD PRESSURE
     Dosage: 5 MG, QD
     Route: 048
  6. ALISKIREN [Concomitant]
     Dosage: 300 MG, QD

REACTIONS (7)
  - FATIGUE [None]
  - DYSPNOEA [None]
  - PALPITATIONS [None]
  - CHEST PAIN [None]
  - ACUTE CORONARY SYNDROME [None]
  - HYPERTENSION [None]
  - LEFT VENTRICULAR DYSFUNCTION [None]
